FAERS Safety Report 18363610 (Version 1)
Quarter: 2020Q4

REPORT INFORMATION
  Report Type: Spontaneous
  Country: US (occurrence: US)
  Receive Date: 20201009
  Receipt Date: 20201009
  Transmission Date: 20210114
  Serious: Yes (Hospitalization)
  Sender: FDA-Public Use
  Company Number: US-AUROBINDO-AUR-APL-2020-049255

PATIENT
  Sex: Male

DRUGS (2)
  1. CLOZAPINE TABLET [Suspect]
     Active Substance: CLOZAPINE
     Indication: PRODUCT USED FOR UNKNOWN INDICATION
     Dosage: UNK
     Route: 048
  2. CLOZAPINE TABLET [Suspect]
     Active Substance: CLOZAPINE
     Dosage: 150 MILLIGRAM, TWO TIMES A DAY (150 MG IN THE MORNING AND 150 MG IN THE BED TIME)
     Route: 065

REACTIONS (2)
  - Hospitalisation [Unknown]
  - Epistaxis [Recovered/Resolved]
